FAERS Safety Report 4428706-9 (Version None)
Quarter: 2004Q3

REPORT INFORMATION
  Report Type: 
  Country: None (occurrence: None)
  Receive Date: 20040818
  Receipt Date: 20040106
  Transmission Date: 20050211
  Serious: No
  Sender: FDA-Public Use
  Company Number: US-BRISTOL-MYERS SQUIBB COMPANY-12469706

PATIENT
  Age: 38 Year
  Sex: Female
  Weight: 59 kg

DRUGS (2)
  1. TEQUIN [Suspect]
     Indication: ANIMAL BITE
     Route: 048
     Dates: start: 20040102, end: 20040105
  2. CLINDAMYCIN [Suspect]
     Indication: ANIMAL BITE
     Route: 048
     Dates: start: 20040102, end: 20040105

REACTIONS (2)
  - DYSGEUSIA [None]
  - PREGNANCY [None]
